FAERS Safety Report 6971925-8 (Version None)
Quarter: 2010Q3

REPORT INFORMATION
  Report Type: 
  Country: None (occurrence: None)
  Receive Date: 20100908
  Receipt Date: 20100908
  Transmission Date: 20110219
  Serious: Yes (Other)
  Sender: FDA-Public Use
  Company Number: None

PATIENT
  Age: 67 Year
  Sex: Male
  Weight: 87.0906 kg

DRUGS (1)
  1. SULAR [Suspect]
     Indication: ESSENTIAL HYPERTENSION
     Dosage: 1 TABLET DAILY PO
     Route: 048
     Dates: start: 20100826, end: 20100903

REACTIONS (1)
  - EPISTAXIS [None]
